FAERS Safety Report 8531201 (Version 2)
Quarter: 2012Q4

REPORT INFORMATION
  Report Type: 
  Country: US (occurrence: US)
  Receive Date: 20120426
  Receipt Date: 20120913
  Transmission Date: 20130627
  Serious: Yes (Hospitalization)
  Sender: FDA-Public Use
  Company Number: US-BAYER-2012-038734

PATIENT
  Age: 31 Year
  Sex: Female
  Weight: 99.77 kg

DRUGS (6)
  1. YAZ [Suspect]
     Indication: CONTRACEPTION
     Dosage: UNK
     Dates: start: 200108, end: 201004
  2. YAZ [Suspect]
     Indication: MENSTRUAL CYCLE MANAGEMENT
  3. YASMIN [Suspect]
     Dosage: UNK
     Dates: start: 200108, end: 201004
  4. NSAID^S [Concomitant]
     Dosage: Occasional use
  5. ADVAIR [Concomitant]
     Indication: ASTHMA
     Dosage: UNK
     Dates: start: 2008
  6. BUPROPION [Concomitant]
     Indication: MOOD SWINGS
     Dosage: UNK
     Dates: start: 2009, end: 2010

REACTIONS (4)
  - Gallbladder disorder [None]
  - Cholecystitis chronic [None]
  - Pain [None]
  - Injury [None]
